FAERS Safety Report 13243914 (Version 1)
Quarter: 2017Q1

REPORT INFORMATION
  Report Type: Spontaneous
  Country: US (occurrence: US)
  Receive Date: 20170217
  Receipt Date: 20170217
  Transmission Date: 20170428
  Serious: No
  Sender: FDA-Public Use
  Company Number: US-BAUSCH-BL-2016-024902

PATIENT
  Age: 75 Year
  Sex: Female

DRUGS (4)
  1. DILTIAZEM CD [Suspect]
     Active Substance: DILTIAZEM
     Indication: HYPERTENSION
     Route: 048
     Dates: start: 20160726
  2. DILTIAZEM CD [Suspect]
     Active Substance: DILTIAZEM
     Indication: COUGH
  3. DILTIAZEM CD [Suspect]
     Active Substance: DILTIAZEM
     Indication: BLOOD SODIUM INCREASED
     Route: 048
     Dates: start: 20160801
  4. PREDNISONE. [Concomitant]
     Active Substance: PREDNISONE
     Indication: PRODUCT USED FOR UNKNOWN INDICATION
     Dosage: A FEW YEARS AGO

REACTIONS (2)
  - Alopecia [Not Recovered/Not Resolved]
  - Dysgeusia [Not Recovered/Not Resolved]

NARRATIVE: CASE EVENT DATE: 2016
